FAERS Safety Report 9235769 (Version 1)
Quarter: 2013Q1

REPORT INFORMATION
  Report Type: Spontaneous
  Country: US (occurrence: None)
  Receive Date: 20121031
  Receipt Date: 20121031
  Transmission Date: 20140127
  Serious: Yes (Other)
  Sender: FDA-Public Use
  Company Number: PHEH2012US016660

PATIENT
  Age: 62 Year
  Sex: Female
  Weight: 77.1 kg

DRUGS (6)
  1. GILENYA [Suspect]
     Indication: MULTIPLE SCLEROSIS
     Route: 048
     Dates: start: 20120821
  2. GLIMEPIRIDE (GLIMEPIRIED) [Concomitant]
  3. LEVOTHYROXINE (LEVOTHYROXINE) [Concomitant]
  4. LOTREL (AMLODIPINE, BENAZEPRIL HYDROCHLORIDE) [Concomitant]
  5. METFORMIN (METFORMIN) [Concomitant]
  6. PREDNISONE(PREDNISONE) [Concomitant]

REACTIONS (1)
  - Heart rate decreased [None]
